FAERS Safety Report 7264889-3 (Version None)
Quarter: 2011Q1

REPORT INFORMATION
  Report Type: 
  Country: None (occurrence: None)
  Receive Date: 20110131
  Receipt Date: 20101116
  Transmission Date: 20110831
  Serious: Yes (Hospitalization, Other)
  Sender: FDA-Public Use
  Company Number: US-BAYER-201033309NA

PATIENT
  Sex: Female
  Weight: 136 kg

DRUGS (9)
  1. OXYCODONE [Concomitant]
     Dosage: 325 MG, UNK
     Route: 048
     Dates: start: 20080722
  2. ONDANSETRON [Concomitant]
     Dosage: 8 MG, UNK
     Route: 048
     Dates: start: 20080722
  3. CITALOPRAM [Concomitant]
     Indication: DEPRESSION
     Dosage: 20 MG, UNK
     Route: 048
     Dates: start: 20080711
  4. YASMIN [Suspect]
     Indication: PRODUCT USED FOR UNKNOWN INDICATION
     Route: 048
     Dates: start: 20080701, end: 20081001
  5. NEXIUM [Concomitant]
     Indication: DYSPEPSIA
     Dosage: 40 MG, UNK
     Route: 048
     Dates: start: 20030101
  6. YAZ [Suspect]
     Indication: CONTRACEPTION
     Dosage: UNK UNK, QD
     Route: 048
     Dates: start: 20080711, end: 20081013
  7. AMOXICILINA [Concomitant]
     Dosage: 500 MG, UNK
     Route: 048
     Dates: start: 20080722
  8. OMEPRAZOLE [Concomitant]
     Dosage: 20 MG, UNK
     Route: 048
     Dates: start: 20080911
  9. FLUCONAZOLE [Concomitant]
     Dosage: 150 MG, UNK
     Route: 048
     Dates: start: 20080722

REACTIONS (6)
  - PAIN IN EXTREMITY [None]
  - DEPRESSION [None]
  - OEDEMA PERIPHERAL [None]
  - DEEP VEIN THROMBOSIS [None]
  - ERYTHEMA [None]
  - AFFECTIVE DISORDER [None]
